FAERS Safety Report 9711766 (Version 2)
Quarter: 2013Q4

REPORT INFORMATION
  Report Type: Spontaneous
  Country: US (occurrence: US)
  Receive Date: 20131126
  Receipt Date: 20131126
  Transmission Date: 20140711
  Serious: No
  Sender: FDA-Public Use
  Company Number: US-BRISTOL-MYERS SQUIBB COMPANY-18808592

PATIENT
  Age: 61 Year
  Sex: Male
  Weight: 149.66 kg

DRUGS (4)
  1. BYDUREON [Suspect]
     Indication: TYPE 2 DIABETES MELLITUS
     Dosage: LOT#73177?EXP:APR2014
     Route: 058
     Dates: start: 2013
  2. METFORMIN [Concomitant]
     Dosage: PRESCRIPTION: 575100
     Route: 048
  3. RANITIDINE [Concomitant]
  4. OMEPRAZOLE [Concomitant]

REACTIONS (11)
  - Pruritus [Unknown]
  - Decreased appetite [Recovering/Resolving]
  - Headache [Unknown]
  - Blood glucose increased [Unknown]
  - Sinus disorder [Unknown]
  - Injection site extravasation [Unknown]
  - Mass [Unknown]
  - Burning sensation [Unknown]
  - Nausea [Recovering/Resolving]
  - Weight decreased [Unknown]
  - Abdominal pain upper [Not Recovered/Not Resolved]
